FAERS Safety Report 11848814 (Version 1)
Quarter: 2015Q4

REPORT INFORMATION
  Report Type: Spontaneous
  Country: US (occurrence: US)
  Receive Date: 20151218
  Receipt Date: 20151218
  Transmission Date: 20160305
  Serious: No
  Sender: FDA-Public Use
  Company Number: US-ELI_LILLY_AND_COMPANY-US201512001067

PATIENT
  Sex: Male

DRUGS (4)
  1. CIALIS [Suspect]
     Active Substance: TADALAFIL
     Indication: ERECTILE DYSFUNCTION
     Dosage: 5 MG, TID
     Route: 048
     Dates: start: 2013
  2. CIALIS [Suspect]
     Active Substance: TADALAFIL
     Indication: BENIGN PROSTATIC HYPERPLASIA
  3. LISINOPRIL. [Concomitant]
     Active Substance: LISINOPRIL
     Dosage: UNK
  4. FLOMAX [Concomitant]
     Active Substance: TAMSULOSIN HYDROCHLORIDE

REACTIONS (12)
  - Flushing [Unknown]
  - Fatigue [Unknown]
  - Myalgia [Unknown]
  - Feeling abnormal [Unknown]
  - Headache [Unknown]
  - Back pain [Unknown]
  - Nasal congestion [Unknown]
  - Intentional product misuse [Unknown]
  - Malaise [Unknown]
  - Blood pressure increased [Unknown]
  - Rhinorrhoea [Unknown]
  - Drug ineffective [Unknown]
